FAERS Safety Report 6239699-6 (Version None)
Quarter: 2009Q2

REPORT INFORMATION
  Report Type: 
  Country: None (occurrence: None)
  Receive Date: 20090619
  Receipt Date: 20090420
  Transmission Date: 20091009
  Serious: Yes (Death)
  Sender: FDA-Public Use
  Company Number: 8047098

PATIENT
  Sex: Female

DRUGS (2)
  1. PREDNISOLONE [Suspect]
     Indication: AUTOIMMUNE HEPATITIS
  2. PREDNISOLONE [Suspect]
     Indication: AUTOIMMUNE HEPATITIS
     Dosage: 10 MG /D

REACTIONS (3)
  - ALANINE AMINOTRANSFERASE INCREASED [None]
  - DRUG RESISTANCE [None]
  - HEPATIC FAILURE [None]
